FAERS Safety Report 8132487-5 (Version None)
Quarter: 2012Q1

REPORT INFORMATION
  Report Type: 
  Country: None (occurrence: None)
  Receive Date: 20120103
  Receipt Date: 20110917
  Transmission Date: 20120608
  Serious: No
  Sender: FDA-Public Use
  Company Number: AE-2011-001648

PATIENT
  Age: 50 Year
  Sex: Male
  Weight: 90.7194 kg

DRUGS (3)
  1. RIBAVIRIN [Concomitant]
  2. INCIVEK [Suspect]
     Dosage: (3 IN 1 D),ORAL
     Route: 048
     Dates: start: 20110909
  3. PEGASYS [Concomitant]

REACTIONS (5)
  - ANORECTAL DISCOMFORT [None]
  - HAEMORRHOIDS [None]
  - FATIGUE [None]
  - RASH [None]
  - DIARRHOEA [None]
